FAERS Safety Report 9056631 (Version 1)
Quarter: 2013Q1

REPORT INFORMATION
  Report Type: Spontaneous
  Country: BR (occurrence: BR)
  Receive Date: 20130204
  Receipt Date: 20130204
  Transmission Date: 20140127
  Serious: Yes (Other)
  Sender: FDA-Public Use
  Company Number: BR-PFIZER INC-2013039931

PATIENT
  Age: 63 Year
  Sex: Female
  Weight: 85 kg

DRUGS (4)
  1. CELEBRA [Suspect]
     Indication: PROCEDURAL PAIN
     Dosage: UNK
  2. CELEBRA [Suspect]
     Indication: OSTEOARTHRITIS
  3. SYNTHROID [Concomitant]
     Dosage: 150 (UNSPECIFIED UNIT)
  4. TAMOXIFEN [Concomitant]
     Dosage: 20 (UNSPECIFIED UNIT)

REACTIONS (2)
  - Breast cancer [Unknown]
  - Pain [Unknown]
